FAERS Safety Report 13353358 (Version 1)
Quarter: 2017Q1

REPORT INFORMATION
  Report Type: Spontaneous
  Country: US (occurrence: US)
  Receive Date: 20170321
  Receipt Date: 20170321
  Transmission Date: 20170429
  Serious: Yes (Other)
  Sender: FDA-Public Use
  Company Number: US-009507513-1703USA008367

PATIENT
  Age: 69 Year
  Sex: Female
  Weight: 93.56 kg

DRUGS (11)
  1. NORCO [Concomitant]
     Active Substance: ACETAMINOPHEN\HYDROCODONE BITARTRATE
  2. PHILLIPS COLON HEALTH PROBIOTIC [Concomitant]
     Active Substance: PROBIOTICS NOS
  3. STRESSTABS (ASCORBIC ACID (+) FOLIC ACID (+) VITAMIN B COMPLEX (+) VIT [Concomitant]
  4. COREG [Concomitant]
     Active Substance: CARVEDILOL
  5. KRILL OIL [Concomitant]
     Active Substance: DIETARY SUPPLEMENT
  6. VITAMIN D [Concomitant]
     Active Substance: CHOLECALCIFEROL
  7. JANUVIA [Suspect]
     Active Substance: SITAGLIPTIN PHOSPHATE
     Indication: GLYCOSYLATED HAEMOGLOBIN INCREASED
     Dosage: DOSE VERBATIN: 24 TABLET
     Route: 048
     Dates: start: 20160622, end: 20160714
  8. PRAVASTATIN. [Concomitant]
     Active Substance: PRAVASTATIN
  9. METFORMIN [Concomitant]
     Active Substance: METFORMIN HYDROCHLORIDE
  10. AMITRIPTYLINE HYDROCHLORIDE. [Concomitant]
     Active Substance: AMITRIPTYLINE HYDROCHLORIDE
  11. LOTREL [Concomitant]
     Active Substance: AMLODIPINE BESYLATE\BENAZEPRIL HYDROCHLORIDE

REACTIONS (1)
  - Abdominal pain upper [Not Recovered/Not Resolved]

NARRATIVE: CASE EVENT DATE: 20160627
